FAERS Safety Report 21970932 (Version 12)
Quarter: 2023Q2

REPORT INFORMATION
  Report Type: Report from Study
  Country: US (occurrence: None)
  Receive Date: 20230209
  Receipt Date: 20230627
  Transmission Date: 20230722
  Serious: Yes (Death, Life-Threatening, Hospitalization, Other)
  Sender: FDA-Public Use
  Company Number: US-ROCHE-3279149

PATIENT
  Sex: Male
  Weight: 73.7 kg

DRUGS (78)
  1. ATEZOLIZUMAB [Suspect]
     Active Substance: ATEZOLIZUMAB
     Indication: Lung squamous cell carcinoma metastatic
     Dosage: ON 11/JAN/2023 AT 2.51 PM, HE HAD THE MOST RECENT DOSE OF 125 MG ATEZOLIZUMAB PRIOR TO SAE.
     Route: 058
     Dates: start: 20221221
  2. ATORVASTATIN [Concomitant]
     Active Substance: ATORVASTATIN
     Indication: Arteriosclerosis
     Route: 048
     Dates: start: 20180112, end: 20230203
  3. VITAMIN D3 [Concomitant]
     Active Substance: CHOLECALCIFEROL
     Route: 048
     Dates: start: 20141112, end: 20230216
  4. LOSARTAN [Concomitant]
     Active Substance: LOSARTAN
     Indication: Hypertension
     Route: 048
     Dates: start: 20140903, end: 20221220
  5. METOPROLOL [Concomitant]
     Active Substance: METOPROLOL
     Indication: Atrial fibrillation
     Route: 048
     Dates: start: 20111221, end: 20230203
  6. METOPROLOL [Concomitant]
     Active Substance: METOPROLOL
     Indication: Hypertension
  7. POLYETHYLENE GLYCOL [Concomitant]
     Active Substance: POLYETHYLENE GLYCOL
     Indication: Constipation
     Route: 048
     Dates: start: 20181220, end: 20230216
  8. RIVAROXABAN [Concomitant]
     Active Substance: RIVAROXABAN
     Indication: Atrial fibrillation
     Route: 048
     Dates: start: 20120814, end: 20230203
  9. TAMSULOSIN [Concomitant]
     Active Substance: TAMSULOSIN
     Route: 048
     Dates: start: 20220704, end: 20230216
  10. LOSARTAN [Concomitant]
     Active Substance: LOSARTAN
     Indication: Hypertension
     Route: 048
     Dates: start: 20221220, end: 20221231
  11. LOSARTAN [Concomitant]
     Active Substance: LOSARTAN
     Dates: start: 20221220, end: 20221231
  12. FUROSEMIDE [Concomitant]
     Active Substance: FUROSEMIDE
     Indication: Cardiac failure chronic
     Route: 042
     Dates: start: 20221229, end: 20221229
  13. FUROSEMIDE [Concomitant]
     Active Substance: FUROSEMIDE
     Indication: Cardiac failure congestive
     Route: 042
     Dates: start: 20221230, end: 20221231
  14. FUROSEMIDE [Concomitant]
     Active Substance: FUROSEMIDE
     Route: 048
     Dates: start: 20230101
  15. MAGNESIUM [Concomitant]
     Active Substance: MAGNESIUM
     Indication: Hypomagnesaemia
     Route: 042
     Dates: start: 20221229, end: 20221231
  16. MAGNESIUM [Concomitant]
     Active Substance: MAGNESIUM
     Route: 048
     Dates: start: 20230204, end: 20230216
  17. PREDNISONE [Concomitant]
     Active Substance: PREDNISONE
     Indication: Eyelid ptosis
     Route: 048
     Dates: start: 20230128, end: 20230204
  18. PREDNISONE [Concomitant]
     Active Substance: PREDNISONE
     Indication: Diplopia
  19. PREDNISONE [Concomitant]
     Active Substance: PREDNISONE
     Indication: Myasthenia gravis
  20. ETOMIDATE [Concomitant]
     Active Substance: ETOMIDATE
     Indication: Pulseless electrical activity
     Route: 042
     Dates: start: 20230203, end: 20230203
  21. ETOMIDATE [Concomitant]
     Active Substance: ETOMIDATE
     Indication: Cardiac arrest
  22. ROCURONIUM [Concomitant]
     Active Substance: ROCURONIUM BROMIDE
     Indication: Pulseless electrical activity
     Route: 042
     Dates: start: 20230203, end: 20230203
  23. ROCURONIUM [Concomitant]
     Active Substance: ROCURONIUM BROMIDE
     Indication: Cardiac arrest
     Route: 042
     Dates: start: 20230209, end: 20230209
  24. ROCURONIUM [Concomitant]
     Active Substance: ROCURONIUM BROMIDE
     Indication: Respiratory failure
  25. PHENYLEPHRINE [Concomitant]
     Active Substance: PHENYLEPHRINE HYDROCHLORIDE
     Indication: Pulseless electrical activity
     Route: 042
     Dates: start: 20230203, end: 20230203
  26. PHENYLEPHRINE [Concomitant]
     Active Substance: PHENYLEPHRINE HYDROCHLORIDE
     Indication: Cardiac arrest
  27. SODIUM BICARBONATE [Concomitant]
     Active Substance: SODIUM BICARBONATE
     Indication: Pulseless electrical activity
     Dosage: 50 OTHER
     Route: 042
     Dates: start: 20230203, end: 20230203
  28. SODIUM BICARBONATE [Concomitant]
     Active Substance: SODIUM BICARBONATE
     Indication: Cardiac arrest
     Dosage: 50 OTHER, SODIUM BICARBONATE-?50MEQ ONCE
     Route: 042
     Dates: start: 20230209, end: 20230209
  29. SODIUM BICARBONATE [Concomitant]
     Active Substance: SODIUM BICARBONATE
     Indication: Respiratory failure
  30. EPINEPHRINE [Concomitant]
     Active Substance: EPINEPHRINE
     Indication: Pulseless electrical activity
     Route: 042
     Dates: start: 20230203, end: 20230203
  31. EPINEPHRINE [Concomitant]
     Active Substance: EPINEPHRINE
     Indication: Cardiac arrest
  32. NOREPINEPHRINE [Concomitant]
     Active Substance: NOREPINEPHRINE
     Indication: Pulseless electrical activity
     Dosage: 0.5 OTHER, NOREPINEPHRINE-0.5?MCG/MIN CONTINUOUS?TITRATED IV
     Route: 042
     Dates: start: 20230203, end: 20230206
  33. NOREPINEPHRINE [Concomitant]
     Active Substance: NOREPINEPHRINE
     Indication: Cardiac arrest
  34. AMIODARONE [Concomitant]
     Active Substance: AMIODARONE
     Indication: Pulseless electrical activity
     Dosage: AMIODARONE IN ISO-OSM?DEXTROSE
     Route: 042
     Dates: start: 20230203, end: 20230203
  35. AMIODARONE [Concomitant]
     Active Substance: AMIODARONE
     Indication: Cardiac arrest
     Dosage: AMIODARONE IN ISO OSM?DEXTROSE-1MG/MIN?TITRATED CONTINUOUS IV
     Route: 042
     Dates: start: 20230203, end: 20230204
  36. AMIODARONE [Concomitant]
     Active Substance: AMIODARONE
     Dosage: AMIODARONE IN ISO OSM DEXTROSE 0.5MG/MIN TITRATED CONTINUOUS IV
     Route: 042
     Dates: start: 20230204, end: 20230204
  37. AMIODARONE [Concomitant]
     Active Substance: AMIODARONE
     Route: 048
     Dates: start: 20230204, end: 20230216
  38. SODIUM CHLORIDE [Concomitant]
     Active Substance: SODIUM CHLORIDE
     Indication: Pulseless electrical activity
     Dosage: SODIUM CHLORIDE 0.9% - BOLUS
     Route: 042
     Dates: start: 20230203, end: 20230203
  39. SODIUM CHLORIDE [Concomitant]
     Active Substance: SODIUM CHLORIDE
     Indication: Cardiac arrest
  40. PIPERACILLIN SODIUM\TAZOBACTAM SODIUM [Concomitant]
     Active Substance: PIPERACILLIN SODIUM\TAZOBACTAM SODIUM
     Route: 042
     Dates: start: 20230203, end: 20230203
  41. SUGAMMADEX [Concomitant]
     Active Substance: SUGAMMADEX
     Route: 042
     Dates: start: 20230203, end: 20230203
  42. FAMOTIDINE [Concomitant]
     Active Substance: FAMOTIDINE
     Route: 042
     Dates: start: 20230203, end: 20230206
  43. SENNA LEAF [Concomitant]
     Active Substance: SENNA LEAF
     Indication: Constipation
     Route: 048
     Dates: start: 20230203, end: 20230206
  44. DOCUSATE [Concomitant]
     Active Substance: DOCUSATE
     Route: 048
     Dates: start: 20230203, end: 20230206
  45. DOCUSATE [Concomitant]
     Active Substance: DOCUSATE
     Route: 048
     Dates: start: 20230210, end: 20230210
  46. BACTRIM [Concomitant]
     Active Substance: SULFAMETHOXAZOLE\TRIMETHOPRIM
     Dates: start: 20230204, end: 20230212
  47. BACTRIM [Concomitant]
     Active Substance: SULFAMETHOXAZOLE\TRIMETHOPRIM
     Route: 048
     Dates: start: 20230205, end: 20230216
  48. ENOXAPARIN [Concomitant]
     Active Substance: ENOXAPARIN
     Route: 058
     Dates: start: 20230203, end: 20230214
  49. LACTATED RINGERS SOLUTION [Concomitant]
     Active Substance: CALCIUM CHLORIDE\POTASSIUM CHLORIDE\SODIUM CHLORIDE\SODIUM LACTATE
     Route: 042
     Dates: start: 20230203, end: 20230203
  50. LACTATED RINGERS SOLUTION [Concomitant]
     Active Substance: CALCIUM CHLORIDE\POTASSIUM CHLORIDE\SODIUM CHLORIDE\SODIUM LACTATE
     Route: 042
     Dates: start: 20230204, end: 20230204
  51. LACTATED RINGERS SOLUTION [Concomitant]
     Active Substance: CALCIUM CHLORIDE\POTASSIUM CHLORIDE\SODIUM CHLORIDE\SODIUM LACTATE
     Route: 042
     Dates: start: 20230209, end: 20230209
  52. CETIRIZINE [Concomitant]
     Active Substance: CETIRIZINE HYDROCHLORIDE
     Route: 048
     Dates: start: 20230203, end: 20230203
  53. ASPIRIN [Concomitant]
     Active Substance: ASPIRIN
     Route: 048
     Dates: start: 20230204, end: 20230206
  54. KEPPRA [Concomitant]
     Active Substance: LEVETIRACETAM
     Route: 042
     Dates: start: 20230204, end: 20230206
  55. KEPPRA [Concomitant]
     Active Substance: LEVETIRACETAM
     Route: 042
     Dates: start: 20230204, end: 20230204
  56. DEXMEDETOMIDINE [Concomitant]
     Active Substance: DEXMEDETOMIDINE
     Route: 042
     Dates: start: 20230204, end: 20230206
  57. CEFTRIAXONE [Concomitant]
     Active Substance: CEFTRIAXONE
     Route: 042
     Dates: start: 20230204, end: 20230210
  58. MAGNESIUM OXIDE [Concomitant]
     Active Substance: MAGNESIUM OXIDE
     Indication: Hypomagnesaemia
     Route: 048
     Dates: start: 20230204, end: 20230216
  59. NOREPINEPHRINE [Concomitant]
     Active Substance: NOREPINEPHRINE
     Indication: Respiratory failure
     Route: 042
     Dates: start: 20230209, end: 20230216
  60. MIDAZOLAM [Concomitant]
     Active Substance: MIDAZOLAM
     Indication: Respiratory failure
     Route: 042
     Dates: start: 20230209, end: 20230209
  61. SUBLIMAZE [Concomitant]
     Active Substance: FENTANYL CITRATE
     Indication: Respiratory failure
     Route: 042
     Dates: start: 20230209, end: 20230209
  62. PHENYLEPHRINE HCL [Concomitant]
     Active Substance: PHENYLEPHRINE HYDROCHLORIDE
     Indication: Respiratory failure
     Route: 042
     Dates: start: 20230209, end: 20230209
  63. VASOPRESSIN [Concomitant]
     Active Substance: VASOPRESSIN
     Indication: Respiratory failure
     Route: 042
     Dates: start: 20230209, end: 20230209
  64. PROPOFOL [Concomitant]
     Active Substance: PROPOFOL
     Indication: Respiratory failure
     Dosage: PROPOFOL-10MCG/KG/MIN
     Route: 042
     Dates: start: 20230209, end: 20230209
  65. PROPOFOL [Concomitant]
     Active Substance: PROPOFOL
     Route: 042
     Dates: start: 20230214, end: 20230214
  66. CARBOXYMETHYLCELLULOSE SODIUM [Concomitant]
     Active Substance: CARBOXYMETHYLCELLULOSE SODIUM
     Route: 047
     Dates: start: 20230203, end: 20230206
  67. HEPARIN [Concomitant]
     Active Substance: HEPARIN SODIUM
     Indication: Thrombosis prophylaxis
     Route: 058
     Dates: start: 20230210, end: 20230216
  68. ACETAZOLAMIDE [Concomitant]
     Active Substance: ACETAZOLAMIDE
     Indication: Oedema
     Route: 042
     Dates: start: 20230211, end: 20230211
  69. ACETAZOLAMIDE [Concomitant]
     Active Substance: ACETAZOLAMIDE
     Indication: Oedema
     Route: 042
     Dates: start: 20230210, end: 20230210
  70. PANTOPRAZOLE [Concomitant]
     Active Substance: PANTOPRAZOLE
     Indication: Gastrointestinal disorder prophylaxis
     Route: 042
     Dates: start: 20230210, end: 20230215
  71. INSULIN NOS [Concomitant]
     Active Substance: INSULIN NOS
     Indication: Hyperglycaemia
     Dosage: SC TITRATED PER BLOOD SUGARS Q?4 HOUR PRN
     Route: 058
     Dates: start: 20230204, end: 20230216
  72. LIDOCAINE [Concomitant]
     Active Substance: LIDOCAINE
     Indication: Oesophagogastroduodenoscopy
     Route: 042
     Dates: start: 20230214, end: 20230214
  73. ACETAMINOPHEN [Concomitant]
     Active Substance: ACETAMINOPHEN
     Route: 042
     Dates: start: 20230216, end: 20230216
  74. ACETAMINOPHEN [Concomitant]
     Active Substance: ACETAMINOPHEN
     Indication: Pain
     Route: 048
     Dates: start: 20230203, end: 20230216
  75. ONDANSETRON [Concomitant]
     Active Substance: ONDANSETRON
     Indication: Nausea
     Route: 042
     Dates: start: 20230216, end: 20230216
  76. ONDANSETRON [Concomitant]
     Active Substance: ONDANSETRON
  77. POTASSIUM CHLORIDE [Concomitant]
     Active Substance: POTASSIUM CHLORIDE
     Route: 042
     Dates: start: 20230204, end: 20230204
  78. ALBUMIN (HUMAN) [Concomitant]
     Active Substance: ALBUMIN HUMAN
     Indication: Hypoalbuminaemia
     Route: 042
     Dates: start: 20230210, end: 20230210

REACTIONS (17)
  - Respiratory failure [Fatal]
  - Acute myocardial infarction [Recovering/Resolving]
  - Myasthenia gravis [Not Recovered/Not Resolved]
  - Hallucination [Not Recovered/Not Resolved]
  - Rectal haemorrhage [Not Recovered/Not Resolved]
  - Pleural effusion [Not Recovered/Not Resolved]
  - Pneumonia aspiration [Not Recovered/Not Resolved]
  - Procedural vomiting [Not Recovered/Not Resolved]
  - Acute kidney injury [Recovered/Resolved]
  - Haematochezia [Not Recovered/Not Resolved]
  - Encephalopathy [Not Recovered/Not Resolved]
  - Confusional state [Not Recovered/Not Resolved]
  - Tachypnoea [Not Recovered/Not Resolved]
  - Dysphagia [Not Recovered/Not Resolved]
  - Cardiac failure congestive [Recovered/Resolved]
  - Urinary retention [Recovered/Resolved]
  - Acute myocardial infarction [Recovered/Resolved]

NARRATIVE: CASE EVENT DATE: 20221229
